FAERS Safety Report 18891778 (Version 1)
Quarter: 2021Q1

REPORT INFORMATION
  Report Type: Not Available
  Country: None (occurrence: None)
  Receive Date: 20210215
  Receipt Date: 20210215
  Transmission Date: 20210420
  Serious: No
  Sender: FDA-Public Use
  Company Number: US-AKORN-159739

PATIENT
  Age: 45 Year
  Sex: Male

DRUGS (1)
  1. MYORISAN [Suspect]
     Active Substance: ISOTRETINOIN

REACTIONS (2)
  - Blood triglycerides increased [None]
  - Off label use [Recovered/Resolved]

NARRATIVE: CASE EVENT DATE: 20200326
